FAERS Safety Report 6518746-8 (Version None)
Quarter: 2009Q4

REPORT INFORMATION
  Report Type: 
  Country: None (occurrence: None)
  Receive Date: 20091218
  Receipt Date: 20091207
  Transmission Date: 20100525
  Serious: Yes (Other)
  Sender: FDA-Public Use
  Company Number: JP-1171650

PATIENT
  Age: 70 Year
  Sex: Male

DRUGS (5)
  1. TRAVATAN Z [Suspect]
     Indication: NORMAL TENSION GLAUCOMA
     Dosage: 1 GTT QD OS, OPHTHALMIC
     Route: 047
     Dates: start: 20091107, end: 20091113
  2. MICARDIS [Concomitant]
  3. URALYT (URALYT) [Concomitant]
  4. BENECID (PROBENECID) [Concomitant]
  5. LIVALO (ITAVASTATIN CALCIUM) [Concomitant]

REACTIONS (11)
  - ANGIOPATHY [None]
  - BURNING SENSATION [None]
  - CONDITION AGGRAVATED [None]
  - RETINAL DETACHMENT [None]
  - RETINAL VASCULITIS [None]
  - SCOTOMA [None]
  - SYSTEMIC LEAKAGE [None]
  - UVEITIS [None]
  - VASCULAR FRAGILITY [None]
  - VASCULAR RUPTURE [None]
  - VISUAL ACUITY REDUCED [None]
